FAERS Safety Report 4323371-3 (Version None)
Quarter: 2004Q1

REPORT INFORMATION
  Report Type: 
  Country: None (occurrence: None)
  Receive Date: 20040324
  Receipt Date: 20040324
  Transmission Date: 20041129
  Serious: Yes (Life-Threatening, Hospitalization)
  Sender: FDA-Public Use
  Company Number: None

PATIENT
  Sex: Female
  Weight: 97.5234 kg

DRUGS (15)
  1. ADALIMUMAB - ABBOTT [Suspect]
     Indication: PSORIATIC ARTHROPATHY
     Dosage: 40 MG SQ Q O W
     Route: 058
     Dates: start: 20031120, end: 20040311
  2. LEVOXYL [Concomitant]
  3. TRICOR [Concomitant]
  4. CELEBREX [Concomitant]
  5. NEXIUM [Concomitant]
  6. ZYBAN [Concomitant]
  7. PLAVIX [Concomitant]
  8. ATENOLOL [Concomitant]
  9. LASIX [Concomitant]
  10. KCL TAB [Concomitant]
  11. ISOSORBIDE [Concomitant]
  12. LORTAB [Concomitant]
  13. NITROQUIK [Concomitant]
  14. ATROVENT INH [Concomitant]
  15. ALBUTEROL SULFATE [Concomitant]

REACTIONS (3)
  - ACUTE RESPIRATORY DISTRESS SYNDROME [None]
  - LOBAR PNEUMONIA [None]
  - LOSS OF CONSCIOUSNESS [None]
